FAERS Safety Report 5575141-6 (Version None)
Quarter: 2007Q4

REPORT INFORMATION
  Report Type: 
  Country: None (occurrence: None)
  Receive Date: 20071130
  Receipt Date: 20070910
  Transmission Date: 20080405
  Serious: No
  Sender: FDA-Public Use
  Company Number: US200709002586

PATIENT
  Age: 63 Year
  Sex: Male

DRUGS (6)
  1. BYETTA [Suspect]
     Indication: TYPE 2 DIABETES MELLITUS
     Dosage: 10 UG, 2/D, SUBCUTANEOUS
     Route: 058
     Dates: start: 20070201, end: 20070901
  2. METFORMIN HCL [Concomitant]
  3. ACTOS [Concomitant]
  4. METOPROLOL TARTRATE [Concomitant]
  5. VERAPAMIL [Concomitant]
  6. DIOVAN (HYDROCHLOROTHIAZIDE, VALSARTAN) [Concomitant]

REACTIONS (2)
  - FATIGUE [None]
  - HEADACHE [None]
